FAERS Safety Report 14477758 (Version 1)
Quarter: 2018Q1

REPORT INFORMATION
  Report Type: Report from Study
  Country: US (occurrence: US)
  Receive Date: 20180201
  Receipt Date: 20180201
  Transmission Date: 20180509
  Serious: No
  Sender: FDA-Public Use
  Company Number: US-EXELIXIS-CABO-17009794

PATIENT
  Sex: Male

DRUGS (11)
  1. CABOMETYX [Suspect]
     Active Substance: CABOZANTINIB S-MALATE
     Indication: RENAL CANCER
     Dosage: 40 MG, QD
     Route: 048
     Dates: start: 20170422
  2. FLONASE [Concomitant]
     Active Substance: FLUTICASONE PROPIONATE
  3. DEXAMETHASONE. [Concomitant]
     Active Substance: DEXAMETHASONE
  4. CLOBETASOL [Concomitant]
     Active Substance: CLOBETASOL
  5. ZINC OXIDE. [Concomitant]
     Active Substance: ZINC OXIDE
  6. VALSARTAN. [Concomitant]
     Active Substance: VALSARTAN
  7. PREPARATION H NOS [Concomitant]
     Active Substance: COCOA BUTTER\PETROLATUM\PHENYLEPHRINE HYDROCHLORIDE\PHENYLEPHRINE HYDROCHLORIDE OR MINERAL OIL
  8. TRIAMCINOLON [Concomitant]
  9. TYLENOL [Concomitant]
     Active Substance: ACETAMINOPHEN
  10. LIDODERM [Concomitant]
     Active Substance: LIDOCAINE
  11. UREA. [Concomitant]
     Active Substance: UREA

REACTIONS (2)
  - Oropharyngeal pain [Unknown]
  - Pain in extremity [Unknown]
